FAERS Safety Report 18951582 (Version 1)
Quarter: 2021Q1

REPORT INFORMATION
  Report Type: Other
  Country: CA (occurrence: CA)
  Receive Date: 20210301
  Receipt Date: 20210301
  Transmission Date: 20210420
  Serious: Yes (Death, Other)
  Sender: FDA-Public Use
  Company Number: CA-CELLTRION INC.-2021CA002462

PATIENT

DRUGS (13)
  1. DOXORUBICIN HYDROCHLORIDE. [Suspect]
     Active Substance: DOXORUBICIN HYDROCHLORIDE
     Indication: PRODUCT USED FOR UNKNOWN INDICATION
     Route: 042
  2. PREDNISOLONE. [Suspect]
     Active Substance: PREDNISOLONE
     Indication: LYMPHOMA
     Route: 065
  3. PREDNISOLONE SODIUM PHOSPHATE. [Suspect]
     Active Substance: PREDNISOLONE SODIUM PHOSPHATE
     Indication: PRODUCT USED FOR UNKNOWN INDICATION
     Route: 065
  4. PROCYTOX [Suspect]
     Active Substance: CYCLOPHOSPHAMIDE
     Indication: PRODUCT USED FOR UNKNOWN INDICATION
     Route: 065
  5. APO?LAMIVUDINE [Suspect]
     Active Substance: LAMIVUDINE
     Dosage: UNK
  6. CYCLOPHOSPHAMIDE. [Suspect]
     Active Substance: CYCLOPHOSPHAMIDE
     Indication: LYMPHOMA
     Route: 065
  7. APO?LAMIVUDINE [Suspect]
     Active Substance: LAMIVUDINE
     Indication: LYMPHOMA
     Dosage: UNK
     Route: 065
  8. VINCRISTINE SULFATE. [Suspect]
     Active Substance: VINCRISTINE SULFATE
     Indication: LYMPHOMA
     Route: 065
  9. RITUXIMAB (UNKNOWN) [Suspect]
     Active Substance: RITUXIMAB
     Indication: LYMPHOMA
     Dosage: UNK
     Route: 042
  10. APO?TENOFOVIR [Suspect]
     Active Substance: TENOFOVIR
     Indication: PRODUCT USED FOR UNKNOWN INDICATION
     Route: 065
  11. RITUXIMAB (UNKNOWN) [Suspect]
     Active Substance: RITUXIMAB
     Dosage: UNK
     Route: 042
  12. RITUXIMAB (UNKNOWN) [Suspect]
     Active Substance: RITUXIMAB
     Dosage: UNK
  13. VIREAD [Suspect]
     Active Substance: TENOFOVIR DISOPROXIL FUMARATE
     Indication: HEPATITIS B
     Route: 065

REACTIONS (9)
  - Acquired gene mutation [Fatal]
  - Hepatitis B reactivation [Fatal]
  - Hepatitis B [Fatal]
  - Neoplasm progression [Fatal]
  - Drug ineffective [Fatal]
  - Condition aggravated [Fatal]
  - Death [Fatal]
  - Gene mutation [Fatal]
  - Hepatic failure [Fatal]
